FAERS Safety Report 9506188 (Version 2)
Quarter: 2014Q1

REPORT INFORMATION
  Report Type: Spontaneous
  Country: US (occurrence: None)
  Receive Date: 20130301
  Receipt Date: 20140304
  Transmission Date: 20141002
  Serious: Yes (Other)
  Sender: FDA-Public Use
  Company Number: RB-43002-2012

PATIENT
  Age: 25 Year
  Sex: Male

DRUGS (2)
  1. SUBOXONE [Suspect]
     Indication: DRUG DEPENDENCE
  2. SUBOXONE [Suspect]
     Indication: DRUG WITHDRAWAL SYNDROME

REACTIONS (4)
  - Road traffic accident [None]
  - Impaired driving ability [None]
  - Balance disorder [None]
  - Gait disturbance [None]
